FAERS Safety Report 4387816-5 (Version None)
Quarter: 2004Q2

REPORT INFORMATION
  Report Type: 
  Country: None (occurrence: None)
  Receive Date: 20040630
  Receipt Date: 20040505
  Transmission Date: 20050107
  Serious: Yes (Hospitalization)
  Sender: FDA-Public Use
  Company Number: PHRM2004FR01769

PATIENT
  Age: 72 Year
  Sex: Female
  Weight: 97 kg

DRUGS (3)
  1. TEGRETOL [Suspect]
     Indication: EPILEPSY
     Dosage: 600 MG/DAY
     Route: 048
     Dates: start: 19900101
  2. ELISOR [Suspect]
     Route: 048
     Dates: start: 20030901
  3. AMLOR [Suspect]
     Route: 048
     Dates: start: 20040101, end: 20040501

REACTIONS (7)
  - ANXIETY [None]
  - DIZZINESS [None]
  - DRUG INTERACTION [None]
  - HOT FLUSH [None]
  - MALAISE [None]
  - MOTOR DYSFUNCTION [None]
  - TREMOR [None]
